FAERS Safety Report 8800699 (Version 2)
Quarter: 2012Q4

REPORT INFORMATION
  Report Type: 
  Country: US (occurrence: US)
  Receive Date: 20120921
  Receipt Date: 20121226
  Transmission Date: 20130627
  Serious: Yes (Hospitalization)
  Sender: FDA-Public Use
  Company Number: US-BAYER-2012-097795

PATIENT
  Age: 23 Year
  Sex: Female

DRUGS (11)
  1. YAZ [Suspect]
  2. YASMIN [Suspect]
  3. OCELLA [Suspect]
  4. CETIRIZINE [Concomitant]
     Dosage: 10 mg, UNK
     Route: 048
  5. PREDNISONE [Concomitant]
     Dosage: 20 mg, 1 tablet 3 times for 5 days
     Route: 048
  6. BUDESONIDE W/FORMOTEROL FUMARATE [Concomitant]
     Dosage: 160-4.5 mcg inhaler
  7. ALBUTEROL SULFATE [Concomitant]
     Indication: SHORTNESS OF BREATH
     Dosage: 90 ?g, PRN every 4-6 hours
  8. MESALAMINE [Concomitant]
     Dosage: 400 mg, 3,3 times a day
     Route: 048
  9. SERTRALINE HYDROCHLORIDE [Concomitant]
     Dosage: 100 mg, DAILY
     Route: 048
  10. MERCAPTOPURINE [Concomitant]
     Dosage: 75 mg, 1, daily
     Route: 048
  11. IRON [Concomitant]
     Route: 048

REACTIONS (2)
  - Injury [None]
  - Pulmonary embolism [Recovering/Resolving]
